FAERS Safety Report 10256517 (Version 1)
Quarter: 2014Q2

REPORT INFORMATION
  Report Type: Spontaneous
  Country: US (occurrence: US)
  Receive Date: 20140624
  Receipt Date: 20140624
  Transmission Date: 20141212
  Serious: No
  Sender: FDA-Public Use
  Company Number: US-ZOGENIX, INC.-2012ZX000224

PATIENT
  Age: 48 Year
  Sex: Female
  Weight: 77.18 kg

DRUGS (4)
  1. SUMAVEL DOSEPRO [Suspect]
     Indication: MIGRAINE
     Dates: start: 201206, end: 201206
  2. SUMATRIPTAN [Concomitant]
     Indication: MIGRAINE
     Route: 048
  3. TRIAMTERENE [Concomitant]
     Indication: DIURETIC THERAPY
     Route: 048
  4. ESTROPIPATE [Concomitant]
     Indication: HORMONE REPLACEMENT THERAPY

REACTIONS (3)
  - Rash [Not Recovered/Not Resolved]
  - Device malfunction [Recovered/Resolved]
  - Accidental exposure to product [Recovered/Resolved]
